FAERS Safety Report 12165446 (Version 2)
Quarter: 2016Q1

REPORT INFORMATION
  Report Type: Spontaneous
  Country: US (occurrence: US)
  Receive Date: 20160309
  Receipt Date: 20160323
  Transmission Date: 20160526
  Serious: Yes (Hospitalization, Other)
  Sender: FDA-Public Use
  Company Number: PHEH2016US005261

PATIENT
  Sex: Female

DRUGS (7)
  1. VITAMIN D [Concomitant]
     Active Substance: CHOLECALCIFEROL
     Indication: SUPPLEMENTATION THERAPY
     Route: 065
  2. METOPROLOL. [Concomitant]
     Active Substance: METOPROLOL
     Indication: PRODUCT USED FOR UNKNOWN INDICATION
     Route: 065
  3. LOSARTAN. [Concomitant]
     Active Substance: LOSARTAN
     Indication: PRODUCT USED FOR UNKNOWN INDICATION
     Dosage: 2 DF, BID
     Route: 048
  4. RECLAST [Suspect]
     Active Substance: ZOLEDRONIC ACID
     Indication: OSTEITIS DEFORMANS
  5. RECLAST [Suspect]
     Active Substance: ZOLEDRONIC ACID
     Indication: OSTEOPOROSIS
     Dosage: UNK
     Route: 042
     Dates: start: 20160211
  6. BONIVA [Suspect]
     Active Substance: IBANDRONATE SODIUM
     Indication: PRODUCT USED FOR UNKNOWN INDICATION
     Route: 065
  7. SYNTHROID [Concomitant]
     Active Substance: LEVOTHYROXINE SODIUM
     Indication: PRODUCT USED FOR UNKNOWN INDICATION
     Dosage: 112 MG, QD
     Route: 048

REACTIONS (22)
  - Swollen tongue [Unknown]
  - Photophobia [Unknown]
  - Stomatitis [Unknown]
  - Dysuria [Unknown]
  - Pain [Unknown]
  - Confusional state [Unknown]
  - Cheilitis [Unknown]
  - Insomnia [Unknown]
  - Asthenia [Unknown]
  - Malaise [Unknown]
  - Blister [Unknown]
  - Swelling face [Unknown]
  - Bone pain [Unknown]
  - Sensory disturbance [Unknown]
  - Lip swelling [Unknown]
  - Headache [Unknown]
  - Eye pain [Unknown]
  - Muscle spasms [Unknown]
  - Amnesia [Unknown]
  - Dizziness [Unknown]
  - Nausea [Unknown]
  - Musculoskeletal stiffness [Unknown]
